FAERS Safety Report 17660594 (Version 2)
Quarter: 2020Q2

REPORT INFORMATION
  Report Type: Spontaneous
  Country: CA (occurrence: CA)
  Receive Date: 20200413
  Receipt Date: 20200422
  Transmission Date: 20200713
  Serious: Yes (Other)
  Sender: FDA-Public Use
  Company Number: CA-PFIZER INC-2019558630

PATIENT
  Age: 83 Year
  Sex: Female
  Weight: 82.4 kg

DRUGS (8)
  1. LETROZOLE. [Concomitant]
     Active Substance: LETROZOLE
     Dosage: 2.5 MG, 1X/DAY
     Route: 048
     Dates: start: 201909
  2. IBRANCE [Suspect]
     Active Substance: PALBOCICLIB
     Dosage: 125 MG, ONCE DAILY FOR 21 DAYS IN A ROW, STOP FOR 14 DAYS
     Route: 048
     Dates: start: 20200305, end: 20200313
  3. IBRANCE [Suspect]
     Active Substance: PALBOCICLIB
     Dosage: 125 MG, ONCE DAILY FOR 21 DAYS IN A ROW, STOP FOR 14 DAYS
     Route: 048
     Dates: start: 20200321, end: 2020
  4. IBRANCE [Suspect]
     Active Substance: PALBOCICLIB
     Dosage: 100 MG, 1X/DAY (DAY 1-21 OF EACH CYCLE)
     Route: 048
     Dates: start: 2020
  5. IBRANCE [Suspect]
     Active Substance: PALBOCICLIB
     Indication: BREAST CANCER METASTATIC
     Dosage: 125 MG, ONCE DAILY FOR 21 DAYS IN A ROW, STOP FOR 14 DAYS
     Route: 048
     Dates: start: 20200108, end: 2020
  6. PERINDOPRIL INDAPAMIDE RATIOPHARM [Concomitant]
     Active Substance: INDAPAMIDE\PERINDOPRIL
     Dosage: 4 MG/1.25MG, 1X/DAY
  7. VITAMIN D NOS [Concomitant]
     Active Substance: VITAMIN D NOS
     Dosage: 2000 IU, 1X/DAY (QD)
  8. FEMARA [Concomitant]
     Active Substance: LETROZOLE
     Indication: BREAST CANCER METASTATIC
     Dosage: 2.5 MG, 1X/DAY
     Route: 048

REACTIONS (5)
  - Renal impairment [Unknown]
  - Hepatic enzyme increased [Unknown]
  - Blood sodium decreased [Unknown]
  - Vomiting [Unknown]
  - Nausea [Unknown]

NARRATIVE: CASE EVENT DATE: 2020
